FAERS Safety Report 6285057-8 (Version None)
Quarter: 2009Q3

REPORT INFORMATION
  Report Type: 
  Country: None (occurrence: None)
  Receive Date: 20090727
  Receipt Date: 20090715
  Transmission Date: 20100115
  Serious: Yes (Hospitalization)
  Sender: FDA-Public Use
  Company Number: JP-BRISTOL-MYERS SQUIBB COMPANY-14710149

PATIENT
  Age: 23 Year
  Sex: Male

DRUGS (5)
  1. EFAVIRENZ [Suspect]
     Indication: ACQUIRED IMMUNODEFICIENCY SYNDROME
     Dosage: FROM JUL08-UNK RESTARTED IN SEP08 AND AGAIN STOPPED IN OCT08.
     Route: 048
     Dates: start: 20080701, end: 20081001
  2. TRUVADA [Suspect]
     Indication: ACQUIRED IMMUNODEFICIENCY SYNDROME
     Dosage: FORM-TAB.
     Route: 048
     Dates: start: 20080701
  3. EPZICOM [Concomitant]
     Dates: start: 20080901
  4. SULFAMETHOXAZOLE AND TRIMETHOPRIM [Concomitant]
  5. HORMONES [Concomitant]
     Dosage: ADRENAL HORMONE PREPARATIONS

REACTIONS (3)
  - DRUG RESISTANCE [None]
  - IMMUNE RECONSTITUTION SYNDROME [None]
  - PNEUMOCYSTIS JIROVECI PNEUMONIA [None]
